FAERS Safety Report 19134597 (Version 2)
Quarter: 2024Q2

REPORT INFORMATION
  Report Type: Spontaneous
  Country: US (occurrence: US)
  Receive Date: 20210414
  Receipt Date: 20240603
  Transmission Date: 20240716
  Serious: Yes (Hospitalization)
  Sender: FDA-Public Use
  Company Number: US-AMNEAL PHARMACEUTICALS-2021-AMRX-01224

PATIENT
  Age: 50 Year
  Sex: Female
  Weight: 88 kg

DRUGS (27)
  1. ACTIVELLA [Suspect]
     Active Substance: ESTRADIOL\NORETHINDRONE ACETATE
     Indication: Uterine leiomyoma
     Dosage: 1 DOSAGE FORM, 1 /DAY
     Route: 048
     Dates: start: 20190326
  2. ACTIVELLA [Suspect]
     Active Substance: ESTRADIOL\NORETHINDRONE ACETATE
     Dosage: UNK, 1 /DAY
     Route: 048
     Dates: start: 20190912, end: 20200812
  3. ACTIVELLA [Suspect]
     Active Substance: ESTRADIOL\NORETHINDRONE ACETATE
     Dosage: UNK, 1 /DAY
     Route: 048
     Dates: start: 20200812, end: 20230517
  4. ELAGOLIX [Suspect]
     Active Substance: ELAGOLIX
     Indication: Uterine leiomyoma
     Dosage: 300 MILLIGRAM, 2 /DAY (AM AND PM DOSE)
     Route: 048
     Dates: start: 20190326
  5. ELAGOLIX [Suspect]
     Active Substance: ELAGOLIX
     Dosage: 300 MG PM DOSE, 1 /DAY
     Route: 048
     Dates: start: 20190912, end: 20200812
  6. ELAGOLIX [Suspect]
     Active Substance: ELAGOLIX
     Dosage: 300 MG PM DOSE, EVERY 1 DAYS
     Route: 048
     Dates: start: 20200812, end: 20230517
  7. FERROUS SULFATE [Concomitant]
     Active Substance: FERROUS SULFATE
     Indication: Anaemia
     Dosage: 325 MILLIGRAM, BID
     Route: 048
     Dates: start: 2016
  8. IBUPROFEN [Concomitant]
     Active Substance: IBUPROFEN
     Indication: Pelvic discomfort
     Dosage: 400 MG, AS NEEDED
     Route: 048
     Dates: start: 2003
  9. IBUPROFEN [Concomitant]
     Active Substance: IBUPROFEN
     Indication: Abdominal pain
     Dosage: 400 MG, AS NECESSARY; 600 MG, EVERY 6 HOURS
     Route: 065
  10. SULTAMICILLIN [Concomitant]
     Active Substance: SULTAMICILLIN
     Indication: Diverticulitis
     Dosage: 3 G
     Route: 065
  11. MORPHINE SULFATE [Concomitant]
     Active Substance: MORPHINE SULFATE
     Indication: Diverticulitis
     Dosage: 8 MG, AS NECESSARY
     Route: 065
  12. ZOFRAN [Concomitant]
     Active Substance: ONDANSETRON HYDROCHLORIDE
     Indication: Diverticulitis
     Dosage: 8 MG, AS NECESSARY
     Route: 065
  13. AMOXICILLIN SODIUM [Concomitant]
     Active Substance: AMOXICILLIN SODIUM
     Indication: Diverticulitis
     Dosage: 875/125 MG, 2/DAYS
     Route: 065
  14. AMOXICILLIN SODIUM [Concomitant]
     Active Substance: AMOXICILLIN SODIUM
     Indication: Urinary tract infection
  15. ACIDOPHILUS [Concomitant]
     Active Substance: LACTOBACILLUS ACIDOPHILUS
     Indication: Diverticulitis
     Dosage: 1 CAPSULES, 2 /DAY
     Route: 065
  16. ACETAMINOPHEN\ASCORBIC ACID [Concomitant]
     Active Substance: ACETAMINOPHEN\ASCORBIC ACID
     Indication: Knee operation
     Dosage: 1 TAB, AS NECESSARY
     Route: 065
  17. OXYCODONE HYDROCHLORIDE [Concomitant]
     Active Substance: OXYCODONE HYDROCHLORIDE
     Indication: Knee operation
     Dosage: 5 MG, AS NECESSARY
     Route: 065
  18. OFT [Concomitant]
     Indication: Knee operation
     Dosage: 4 MILLIGRAM, 1 /DAY
     Route: 065
  19. CELECOXIB [Concomitant]
     Active Substance: CELECOXIB
     Indication: Knee operation
     Dosage: 200 MG, AS NECESSARY
     Route: 065
  20. TRAMADOL [Concomitant]
     Active Substance: TRAMADOL\TRAMADOL HYDROCHLORIDE
     Indication: Pain
     Dosage: 40 MG, AS NECESSARY
     Route: 065
  21. GLUCOPHAGE [Concomitant]
     Active Substance: METFORMIN HYDROCHLORIDE
     Indication: Type 2 diabetes mellitus
     Dosage: 500 MG, 2/DAYS
     Route: 065
  22. JANUVIA [Concomitant]
     Active Substance: SITAGLIPTIN PHOSPHATE
     Indication: Type 2 diabetes mellitus
     Dosage: 150 MG, EVERY 1 DAYS
     Route: 065
  23. SITAGLIPTIN [Concomitant]
     Active Substance: SITAGLIPTIN
     Indication: Type 2 diabetes mellitus
     Dosage: 150 MG, EVERY 1 DAYS
     Route: 065
  24. IMODIUM [Concomitant]
     Active Substance: LOPERAMIDE HYDROCHLORIDE
     Indication: Gastroenteritis viral
     Dosage: 5 MG, EVERY 1 DAYS
     Route: 065
  25. JARDIANCE [Concomitant]
     Active Substance: EMPAGLIFLOZIN
     Indication: Diabetes mellitus
     Dosage: 10 MG, EVERY 1 DAYS
     Route: 065
  26. FARXIGA [Concomitant]
     Active Substance: DAPAGLIFLOZIN PROPANEDIOL
     Indication: Diabetes mellitus
     Dosage: 10 MG, EVERY 1 DAYS
     Route: 065
  27. VITAMIN D3 [Concomitant]
     Active Substance: CHOLECALCIFEROL
     Indication: Vitamin D deficiency
     Dosage: 1000 IU, EVERY 1 DAYS
     Route: 065
     Dates: start: 201901, end: 20190301

REACTIONS (2)
  - Pneumonia [Recovered/Resolved]
  - Bone density decreased [Not Recovered/Not Resolved]

NARRATIVE: CASE EVENT DATE: 20190605
